FAERS Safety Report 21741334 (Version 1)
Quarter: 2022Q4

REPORT INFORMATION
  Report Type: Spontaneous
  Country: US (occurrence: None)
  Receive Date: 20221216
  Receipt Date: 20221216
  Transmission Date: 20230112
  Serious: Yes (Hospitalization)
  Sender: FDA-Public Use
  Company Number: None

PATIENT
  Age: 47 Year
  Sex: Male
  Weight: 99 kg

DRUGS (1)
  1. DUPIXENT [Suspect]
     Active Substance: DUPILUMAB
     Indication: Dermatitis atopic
     Dosage: OTHER FREQUENCY : EVERY TWO WEEKS;?
     Route: 058

REACTIONS (5)
  - Pneumonia [None]
  - Wrong technique in product usage process [None]
  - Incorrect dose administered by device [None]
  - Accidental exposure to product [None]
  - Cough [None]

NARRATIVE: CASE EVENT DATE: 20221202
